FAERS Safety Report 21859138 (Version 1)
Quarter: 2023Q1

REPORT INFORMATION
  Report Type: Spontaneous
  Country: ES (occurrence: ES)
  Receive Date: 20230113
  Receipt Date: 20230113
  Transmission Date: 20230417
  Serious: Yes (Hospitalization, Other)
  Sender: FDA-Public Use
  Company Number: None

PATIENT
  Age: 67 Year
  Sex: Male
  Weight: 63 kg

DRUGS (16)
  1. IFOSFAMIDE [Suspect]
     Active Substance: IFOSFAMIDE
     Indication: Liposarcoma
     Dosage: 5040 MG,  1,000 MG  INJECTABLE INFUSION
     Route: 042
     Dates: start: 20220316, end: 20220318
  2. FOLIC ACID [Concomitant]
     Active Substance: FOLIC ACID
     Indication: Hypovitaminosis
     Dosage: 28 TABLETS
     Route: 048
     Dates: start: 20220316
  3. NEULASTA [Concomitant]
     Active Substance: PEGFILGRASTIM
     Indication: Aplasia
     Dosage: 6 MG, 1 0.6 ML PRE-FILLED SYRINGE
     Route: 058
     Dates: start: 20220319
  4. AKYNZEO [Concomitant]
     Indication: Premedication
     Dosage: 300 MG/0.5, 1 CAPSULE
     Route: 048
     Dates: start: 20220316
  5. ALBUMIN HUMAN [Concomitant]
     Active Substance: ALBUMIN HUMAN
     Indication: Hypoalbuminaemia
     Dosage: 60 G/DAY,  INJECTABLE INFUSION 100 ML
     Route: 042
     Dates: start: 20220318
  6. POLARAMINE [Concomitant]
     Active Substance: DEXCHLORPHENIRAMINE MALEATE
     Indication: Premedication
     Dosage: 5 MG, 5 1 ML AMPOULES
     Route: 042
     Dates: start: 20220316
  7. ASPARTIC ACID\POTASSIUM ASCORBATE [Concomitant]
     Active Substance: ASPARTIC ACID\POTASSIUM ASCORBATE
     Indication: Hypokalaemia
     Dosage: 1 TAB/12 HR, COMPRIMIDOS EFERVESCENTES, 20 TABLETS
     Route: 048
     Dates: start: 20220316
  8. MESNA [Concomitant]
     Active Substance: MESNA
     Indication: Liposarcoma
     Dosage: 7500 MG, 10 10 ML AMPOULES
     Route: 042
     Dates: start: 20220316
  9. LORMETAZEPAM [Concomitant]
     Active Substance: LORMETAZEPAM
     Indication: Insomnia
     Dosage: 1 MG, 30 TABLETS
     Route: 048
     Dates: start: 20210307
  10. DEXAMETHASONE [Concomitant]
     Active Substance: DEXAMETHASONE
     Indication: Premedication
     Dosage: 12 MG,  INJECTABLE 1 ML
     Route: 042
     Dates: start: 20220316
  11. HIBOR [Concomitant]
     Indication: Prophylaxis
     Dosage: 3500 IU, ANTI XA/0.2 ML,  10 0.2-ML PRE-FILLED SYRINGES
     Route: 058
     Dates: start: 20220316
  12. DOXORUBICIN [Concomitant]
     Active Substance: DOXORUBICIN
     Indication: Liposarcoma
     Dosage: 50 MG, N 2 MG/ML INJECTABLE INFUSION 25 ML 1 VIAL
     Route: 042
     Dates: start: 20220316
  13. LEVOTHYROXINE [Concomitant]
     Active Substance: LEVOTHYROXINE
     Indication: Hypothyroidism
     Dosage: 300 MCG, 100 MICROGRAMS
     Route: 048
  14. PANTOPRAZOLE [Concomitant]
     Active Substance: PANTOPRAZOLE
     Indication: Chronic gastritis
     Dosage: 40 MG 1 TABLET
     Route: 048
     Dates: start: 20130916
  15. METOCLOPRAMIDE [Concomitant]
     Active Substance: METOCLOPRAMIDE
     Indication: Nausea
     Dosage: 10 MG/8H,  30 TABLETS
     Route: 048
     Dates: start: 20220316
  16. CALCIUM POLYSTYRENE SULFONATE [Concomitant]
     Active Substance: CALCIUM POLYSTYRENE SULFONATE
     Indication: Bile acid malabsorption
     Dosage: 1 SACHETS, POLVO PARA SUSPENSION ORAL, 26 SACHETS
     Route: 048
     Dates: start: 20190814

REACTIONS (2)
  - Encephalitis [Recovered/Resolved]
  - Neuropathy peripheral [Recovered/Resolved]

NARRATIVE: CASE EVENT DATE: 20220318
